FAERS Safety Report 20071177 (Version 1)
Quarter: 2021Q4

REPORT INFORMATION
  Report Type: Spontaneous
  Country: US (occurrence: US)
  Receive Date: 20211115
  Receipt Date: 20211115
  Transmission Date: 20220303
  Serious: Yes (Other)
  Sender: FDA-Public Use
  Company Number: US-BIOVITRUM-2021US7886

PATIENT
  Age: 19 Year
  Sex: Male

DRUGS (3)
  1. KINERET [Suspect]
     Active Substance: ANAKINRA
     Indication: Still^s disease
     Route: 058
     Dates: start: 20210822
  2. PREDNISONE [Suspect]
     Active Substance: PREDNISONE
  3. VANCOMYCIN [Suspect]
     Active Substance: VANCOMYCIN

REACTIONS (5)
  - Clostridium difficile infection [Unknown]
  - Swelling face [Unknown]
  - Drug hypersensitivity [Unknown]
  - Injection site pain [Unknown]
  - Off label use [Unknown]

NARRATIVE: CASE EVENT DATE: 20210801
